FAERS Safety Report 6644865-1 (Version None)
Quarter: 2010Q1

REPORT INFORMATION
  Report Type: 
  Country: None (occurrence: None)
  Receive Date: 20100322
  Receipt Date: 20100312
  Transmission Date: 20100710
  Serious: Yes (Hospitalization)
  Sender: FDA-Public Use
  Company Number: FR-ABBOTT-10P-056-0631697-00

PATIENT
  Sex: Male

DRUGS (5)
  1. HUMIRA [Suspect]
     Indication: PSORIASIS
     Route: 058
     Dates: start: 20090601, end: 20100126
  2. NABUCOX [Suspect]
     Indication: BRONCHITIS
     Dates: start: 20100125, end: 20100129
  3. PARACETAMOL [Suspect]
     Indication: BRONCHITIS
     Dates: start: 20100125, end: 20100129
  4. OMEPRAZOLE [Suspect]
     Indication: BRONCHITIS
     Dates: start: 20100125, end: 20100129
  5. TEGRETOL [Concomitant]
     Indication: EPILEPSY

REACTIONS (2)
  - BRONCHITIS [None]
  - LEUKOCYTOCLASTIC VASCULITIS [None]
